FAERS Safety Report 7427323-6 (Version None)
Quarter: 2011Q2

REPORT INFORMATION
  Report Type: 
  Country: None (occurrence: None)
  Receive Date: 20110420
  Receipt Date: 20110413
  Transmission Date: 20111010
  Serious: Yes (Hospitalization, Other)
  Sender: FDA-Public Use
  Company Number: FR-PFIZER INC-2011080877

PATIENT
  Age: 70 Year
  Sex: Female
  Weight: 118 kg

DRUGS (2)
  1. MULTAQ [Suspect]
     Dosage: 400 MG, 2X/DAY
     Route: 048
     Dates: start: 20110210, end: 20110211
  2. TAHOR [Suspect]
     Dosage: UNK
     Route: 048
     Dates: start: 20100707, end: 20110216

REACTIONS (4)
  - HEPATITIS [None]
  - CHOLELITHIASIS [None]
  - ABDOMINAL PAIN UPPER [None]
  - TRANSAMINASES INCREASED [None]
